FAERS Safety Report 5043027-1 (Version None)
Quarter: 2006Q2

REPORT INFORMATION
  Report Type: 
  Country: None (occurrence: None)
  Receive Date: 20060627
  Receipt Date: 20060619
  Transmission Date: 20061013
  Serious: Yes (Other)
  Sender: FDA-Public Use
  Company Number: MC200600419

PATIENT
  Age: 86 Year
  Sex: Female
  Weight: 67 kg

DRUGS (4)
  1. ANGIOX (BIVALIRUDIN) INJECTION [Suspect]
     Dosage: 3.1 ML BOLUS, IV BOLUS
     Route: 040
     Dates: start: 20060513, end: 20060513
  2. PLAVIX [Concomitant]
  3. CARDIO ASPIRINA (ACETYLSALICYLIC ACID) [Concomitant]
  4. LIPITOR [Concomitant]

REACTIONS (3)
  - CARDIAC PROCEDURE COMPLICATION [None]
  - PUNCTURE SITE REACTION [None]
  - VASCULAR PSEUDOANEURYSM [None]
